FAERS Safety Report 5604351-4 (Version None)
Quarter: 2008Q1

REPORT INFORMATION
  Report Type: 
  Country: None (occurrence: None)
  Receive Date: 20080123
  Receipt Date: 20080123
  Transmission Date: 20080703
  Serious: Yes (Life-Threatening, Hospitalization)
  Sender: FDA-Public Use
  Company Number: None

PATIENT
  Age: 27 Year
  Sex: Female
  Weight: 90.7194 kg

DRUGS (1)
  1. SULFA [Suspect]
     Indication: SINUSITIS
     Dosage: 3X DAILY PO
     Route: 048

REACTIONS (1)
  - STEVENS-JOHNSON SYNDROME [None]
